FAERS Safety Report 4722954-6 (Version None)
Quarter: 2005Q3

REPORT INFORMATION
  Report Type: 
  Country: None (occurrence: None)
  Receive Date: 20050722
  Receipt Date: 20050711
  Transmission Date: 20060218
  Serious: Yes (Hospitalization)
  Sender: FDA-Public Use
  Company Number: ES-MERCK-0507ESP00009

PATIENT
  Age: 77 Year
  Sex: Female

DRUGS (2)
  1. COZAAR [Suspect]
     Indication: ESSENTIAL HYPERTENSION
     Route: 048
     Dates: start: 20040101, end: 20040823
  2. SPIRONOLACTONE [Suspect]
     Indication: ESSENTIAL HYPERTENSION
     Route: 048
     Dates: start: 20040101, end: 20040823

REACTIONS (2)
  - DRUG INTERACTION [None]
  - HYPERKALAEMIA [None]
